FAERS Safety Report 18178059 (Version 1)
Quarter: 2020Q3

REPORT INFORMATION
  Report Type: Spontaneous
  Country: US (occurrence: US)
  Receive Date: 20200820
  Receipt Date: 20200820
  Transmission Date: 20201103
  Serious: No
  Sender: FDA-Public Use
  Company Number: US-JAZZ-JPI-P-017318

PATIENT
  Age: 28 Year
  Sex: Female
  Weight: 61.36 kg

DRUGS (11)
  1. XYREM [Suspect]
     Active Substance: SODIUM OXYBATE
     Dosage: 2 GRAM, BID
     Route: 048
     Dates: start: 202005
  2. EXCEDRIN EXTRA STRENGTH [Concomitant]
     Active Substance: ACETAMINOPHEN\ASPIRIN\CAFFEINE
  3. TRINESSA [Concomitant]
     Active Substance: ETHINYL ESTRADIOL\NORGESTIMATE
  4. XYREM [Suspect]
     Active Substance: SODIUM OXYBATE
     Indication: SOMNOLENCE
     Dosage: 2.25 GRAM, BID
     Route: 048
     Dates: start: 201109, end: 201110
  5. XYREM [Suspect]
     Active Substance: SODIUM OXYBATE
     Indication: CATAPLEXY
     Dosage: 4.5 GRAM, BID
     Route: 048
     Dates: start: 201112, end: 201201
  6. ATOMOXETINE HCL [Concomitant]
     Active Substance: ATOMOXETINE HYDROCHLORIDE
  7. CONCERTA [Concomitant]
     Active Substance: METHYLPHENIDATE HYDROCHLORIDE
  8. IBUPROFEN. [Concomitant]
     Active Substance: IBUPROFEN
  9. TOPAMAX [Concomitant]
     Active Substance: TOPIRAMATE
  10. XYLOMETAZOLINE [Concomitant]
     Active Substance: XYLOMETAZOLINE
  11. XYREM [Suspect]
     Active Substance: SODIUM OXYBATE
     Indication: NARCOLEPSY
     Dosage: SINGLE (3 GM 1ST DOSE/  2.25 GM 2ND DOSE)
     Route: 048
     Dates: start: 2011

REACTIONS (15)
  - Hypoaesthesia [Not Recovered/Not Resolved]
  - Burning sensation [Not Recovered/Not Resolved]
  - Nausea [Unknown]
  - Depressed mood [Unknown]
  - Arthralgia [Not Recovered/Not Resolved]
  - Inappropriate affect [Unknown]
  - Feeling abnormal [Unknown]
  - Initial insomnia [Unknown]
  - Drug ineffective [Not Recovered/Not Resolved]
  - Dry eye [Unknown]
  - Emotional disorder [Unknown]
  - Eye pain [Unknown]
  - Crying [Unknown]
  - Paraesthesia [Not Recovered/Not Resolved]
  - Insomnia [Not Recovered/Not Resolved]

NARRATIVE: CASE EVENT DATE: 2011
